FAERS Safety Report 23060647 (Version 1)
Quarter: 2023Q4

REPORT INFORMATION
  Report Type: Spontaneous
  Country: FR (occurrence: FR)
  Receive Date: 20231012
  Receipt Date: 20231012
  Transmission Date: 20240109
  Serious: Yes (Hospitalization)
  Sender: FDA-Public Use
  Company Number: FR-SANDOZ-SDZ2023FR041007

PATIENT
  Age: 14 Year
  Sex: Female

DRUGS (1)
  1. OMNITROPE [Suspect]
     Active Substance: SOMATROPIN
     Indication: Growth retardation
     Dosage: 0.5 MG PER DAY 7/7
     Route: 065

REACTIONS (2)
  - Nervous system disorder [Unknown]
  - Product dose omission issue [Unknown]
